FAERS Safety Report 12597371 (Version 1)
Quarter: 2016Q3

REPORT INFORMATION
  Report Type: Report from Study
  Country: US (occurrence: US)
  Receive Date: 20160727
  Receipt Date: 20160727
  Transmission Date: 20161109
  Serious: Yes (Other)
  Sender: FDA-Public Use
  Company Number: US-ROCHE-1329221

PATIENT
  Age: 59 Year
  Sex: Female
  Weight: 50.6 kg

DRUGS (11)
  1. CISPLATIN. [Suspect]
     Active Substance: CISPLATIN
     Indication: SMALL CELL LUNG CANCER
     Dosage: DOSE: OVER 2 HRS ON DAY 1 CYCLES 5
     Route: 042
     Dates: start: 20100222
  2. VISMODEGIB [Suspect]
     Active Substance: VISMODEGIB
     Dosage: COURSE 7
     Route: 048
     Dates: start: 20100630
  3. VISMODEGIB [Suspect]
     Active Substance: VISMODEGIB
     Dosage: COURSE 9
     Route: 048
     Dates: start: 20100812
  4. VISMODEGIB [Suspect]
     Active Substance: VISMODEGIB
     Dosage: COURSE 4
     Route: 048
     Dates: start: 20100426
  5. VISMODEGIB [Suspect]
     Active Substance: VISMODEGIB
     Dosage: COURSE 8
     Route: 048
     Dates: start: 20100721
  6. ETOPOSIDE. [Suspect]
     Active Substance: ETOPOSIDE
     Indication: SMALL CELL LUNG CANCER
     Dosage: DOSE:100 MG/M2/DAY IV OVER 2 HRS ON DAYS 1-3
     Route: 042
     Dates: start: 20100222
  7. VISMODEGIB [Suspect]
     Active Substance: VISMODEGIB
     Indication: SMALL CELL LUNG CANCER
     Dosage: CYCLE 21 DAYS, CYCLES 1-4. LAST DOSE PRIOR TO EVENT OF ANOREXIA: 25/APR/2010?LAST DOSE RECEIVED ON 0
     Route: 048
     Dates: start: 20100222
  8. VISMODEGIB [Suspect]
     Active Substance: VISMODEGIB
     Dosage: COURSE 3
     Route: 048
     Dates: start: 20100405
  9. VISMODEGIB [Suspect]
     Active Substance: VISMODEGIB
     Dosage: COURSE 2
     Route: 048
     Dates: start: 20100315
  10. VISMODEGIB [Suspect]
     Active Substance: VISMODEGIB
     Dosage: COURSE 5
     Route: 048
     Dates: start: 20100519
  11. VISMODEGIB [Suspect]
     Active Substance: VISMODEGIB
     Dosage: COURSE 6
     Route: 048
     Dates: start: 20100609

REACTIONS (5)
  - Decreased appetite [Recovered/Resolved]
  - Neutrophil count decreased [Unknown]
  - Neutrophil count decreased [Unknown]
  - Fatigue [Unknown]
  - Nausea [Recovered/Resolved]

NARRATIVE: CASE EVENT DATE: 20100308
